FAERS Safety Report 15291348 (Version 1)
Quarter: 2018Q3

REPORT INFORMATION
  Report Type: Spontaneous
  Country: FR (occurrence: FR)
  Receive Date: 20180817
  Receipt Date: 20180817
  Transmission Date: 20181010
  Serious: Yes (Death, Hospitalization, Other)
  Sender: FDA-Public Use
  Company Number: FR-MYLANLABS-2018M1056675

PATIENT
  Sex: Male

DRUGS (1)
  1. CLOZAPINE MYLAN [Suspect]
     Active Substance: CLOZAPINE
     Indication: PRODUCT USED FOR UNKNOWN INDICATION
     Dosage: 100 MG, UNK
     Dates: end: 201807

REACTIONS (6)
  - Respiratory distress [Fatal]
  - Acinetobacter infection [Fatal]
  - Atelectasis [Fatal]
  - Staphylococcal infection [Fatal]
  - White blood cell count decreased [Recovering/Resolving]
  - Agranulocytosis [Fatal]

NARRATIVE: CASE EVENT DATE: 201807
